FAERS Safety Report 8381427 (Version 4)
Quarter: 2012Q4

REPORT INFORMATION
  Report Type: 
  Country: US (occurrence: US)
  Receive Date: 20120131
  Receipt Date: 20120926
  Transmission Date: 20130627
  Serious: Yes (Other)
  Sender: FDA-Public Use
  Company Number: PHEH2012US002294

PATIENT
  Age: 85 Year
  Sex: Female
  Weight: 76 kg

DRUGS (5)
  1. TASIGNA [Suspect]
     Indication: CHRONIC MYELOID LEUKAEMIA
     Dosage: 200 mg, BID
     Route: 048
     Dates: start: 20100329
  2. ASA [Concomitant]
     Dosage: 81 mg, QD
  3. LISINOPRIL [Concomitant]
     Dosage: 10 mg, QD
  4. TOPROL XL [Concomitant]
     Dosage: UNK UKN, UNK
  5. PLAVIX [Concomitant]
     Dosage: 75 mg,
     Route: 048

REACTIONS (3)
  - Cerebrovascular accident [Recovered/Resolved with Sequelae]
  - Dementia [Not Recovered/Not Resolved]
  - Confusional state [Not Recovered/Not Resolved]
